FAERS Safety Report 6489862-4 (Version None)
Quarter: 2009Q4

REPORT INFORMATION
  Report Type: 
  Country: None (occurrence: None)
  Receive Date: 20091210
  Receipt Date: 20091210
  Transmission Date: 20100525
  Serious: Yes (Other)
  Sender: FDA-Public Use
  Company Number: None

PATIENT
  Age: 52 Year
  Sex: Female
  Weight: 61.2356 kg

DRUGS (4)
  1. BUPROPION HCL [Suspect]
     Indication: ANXIETY
     Dosage: 150 MG ONCE A DAY PO
     Route: 048
     Dates: start: 20090101, end: 20090210
  2. BUPROPION HCL [Suspect]
     Indication: DEPRESSION
     Dosage: 150 MG ONCE A DAY PO
     Route: 048
     Dates: start: 20090101, end: 20090210
  3. BUPROPION HCL [Suspect]
     Indication: ANXIETY
     Dates: start: 20090830, end: 20090917
  4. BUPROPION HCL [Suspect]
     Indication: DEPRESSION
     Dates: start: 20090830, end: 20090917

REACTIONS (4)
  - ANXIETY [None]
  - CRYING [None]
  - PALPITATIONS [None]
  - PRODUCT SUBSTITUTION ISSUE [None]
